FAERS Safety Report 8388235-7 (Version None)
Quarter: 2012Q2

REPORT INFORMATION
  Report Type: 
  Country: None (occurrence: None)
  Receive Date: 20120525
  Receipt Date: 20120522
  Transmission Date: 20120825
  Serious: Yes (Hospitalization)
  Sender: FDA-Public Use
  Company Number: US-PFIZER INC-2012124195

PATIENT
  Sex: Female
  Weight: 71 kg

DRUGS (5)
  1. LYRICA [Suspect]
     Indication: NEURALGIA
     Dosage: 225 MG, 2X/DAY
     Route: 048
  2. LYRICA [Suspect]
     Indication: MORTON'S NEUROMA
  3. LYRICA [Suspect]
     Indication: NEUROPATHY PERIPHERAL
  4. CELEBREX [Suspect]
     Indication: INFLAMMATION
     Dosage: 200 MG, 2X/DAY
     Route: 048
  5. METHOTREXATE [Concomitant]
     Dosage: UNK

REACTIONS (3)
  - SKIN ULCER [None]
  - STRESS [None]
  - GANGRENE [None]
